FAERS Safety Report 18873628 (Version 2)
Quarter: 2021Q4

REPORT INFORMATION
  Report Type: Spontaneous
  Country: US (occurrence: None)
  Receive Date: 20210210
  Receipt Date: 20211221
  Transmission Date: 20220303
  Serious: Yes (Disabling, Other)
  Sender: FDA-Public Use
  Company Number: 2021A026820

PATIENT
  Age: 15619 Day
  Sex: Male
  Weight: 70.3 kg

DRUGS (39)
  1. NEXIUM [Suspect]
     Active Substance: ESOMEPRAZOLE MAGNESIUM
     Indication: Gastrooesophageal reflux disease
     Dosage: FOR VARIOUS DATES AND YEARS INCLUDING BUT NOT LIMITED TO 2002 THROUGH 2012
     Route: 048
     Dates: start: 2002, end: 2012
  2. NEXIUM [Suspect]
     Active Substance: ESOMEPRAZOLE MAGNESIUM
     Indication: Gastrooesophageal reflux disease
     Route: 048
     Dates: start: 2005, end: 2012
  3. NEXIUM [Suspect]
     Active Substance: ESOMEPRAZOLE MAGNESIUM
     Indication: Gastrooesophageal reflux disease
     Dosage: GENERIC
     Route: 065
     Dates: start: 2013, end: 2014
  4. OMEPRAZOLE [Suspect]
     Active Substance: OMEPRAZOLE
     Indication: Gastrooesophageal reflux disease
     Dosage: GENERIC
     Route: 065
     Dates: start: 2014
  5. PREVACID [Suspect]
     Active Substance: LANSOPRAZOLE
     Indication: Gastrooesophageal reflux disease
     Dosage: FOR VARIOUS DATES AND YEARS INCLUDING BUT NOT LIMITED TO 2002 THROUGH 2012
     Route: 065
     Dates: start: 2002, end: 2012
  6. PREVACID [Suspect]
     Active Substance: LANSOPRAZOLE
     Indication: Gastrooesophageal reflux disease
     Route: 065
     Dates: start: 2002, end: 2005
  7. ZEGERID [Suspect]
     Active Substance: OMEPRAZOLE\SODIUM BICARBONATE
     Indication: Gastrooesophageal reflux disease
     Route: 065
     Dates: start: 2015
  8. ZEGERID [Suspect]
     Active Substance: OMEPRAZOLE\SODIUM BICARBONATE
     Indication: Gastrooesophageal reflux disease
     Dosage: GENERIC
     Route: 065
     Dates: start: 2015
  9. ALLOPURINOL [Concomitant]
     Active Substance: ALLOPURINOL
     Indication: Gout
  10. COLCRYS [Concomitant]
     Active Substance: COLCHICINE
     Indication: Gout
  11. CALCITRIOL [Concomitant]
     Active Substance: CALCITRIOL
     Indication: Chronic kidney disease
  12. MAGNESIUM [Concomitant]
     Active Substance: MAGNESIUM
     Indication: Chronic kidney disease
  13. GENTAMICIN [Concomitant]
     Active Substance: GENTAMICIN
     Indication: Chronic kidney disease
  14. EPOGEN [Concomitant]
     Active Substance: ERYTHROPOIETIN
     Indication: Chronic kidney disease
  15. METOPROLOL [Concomitant]
     Active Substance: METOPROLOL
     Indication: Chronic kidney disease
  16. GABAPENTIN [Concomitant]
     Active Substance: GABAPENTIN
     Indication: Neuropathy peripheral
  17. LISINOPRIL [Concomitant]
     Active Substance: LISINOPRIL
     Indication: Blood pressure abnormal
  18. ASPIRIN [Concomitant]
     Active Substance: ASPIRIN
     Indication: Cardiac disorder
  19. CALTRATE [Concomitant]
     Active Substance: CALCIUM CARBONATE
  20. FERROUS SULFATE [Concomitant]
     Active Substance: FERROUS SULFATE
  21. METOPROLOL TARTRATE [Concomitant]
     Active Substance: METOPROLOL TARTRATE
  22. PREDNISONE [Concomitant]
     Active Substance: PREDNISONE
  23. VITAMINS [Concomitant]
     Active Substance: VITAMINS
  24. AMLODIPINE BESYLATE [Concomitant]
     Active Substance: AMLODIPINE BESYLATE
  25. CHLORTHALIDONE [Concomitant]
     Active Substance: CHLORTHALIDONE
  26. SODIUM POLYSTYRENE SULFONATE [Concomitant]
     Active Substance: SODIUM POLYSTYRENE SULFONATE
  27. DOCUSATE SODIUM [Concomitant]
     Active Substance: DOCUSATE SODIUM
  28. ECULIZIMAB [Concomitant]
  29. MAGNESIUM OXIDE [Concomitant]
     Active Substance: MAGNESIUM OXIDE
  30. DOXYCYCLINE HYCLATE [Concomitant]
     Active Substance: DOXYCYCLINE HYCLATE
  31. BACTRIM [Concomitant]
     Active Substance: SULFAMETHOXAZOLE\TRIMETHOPRIM
  32. VITAMIN B COMPLEX [Concomitant]
     Active Substance: CYANOCOBALAMIN\DEXPANTHENOL\NIACINAMIDE\PYRIDOXINE HYDROCHLORIDE\RIBOFLAVIN 5^-PHOSPHATE SODIUM\THIA
  33. VITAMIN C [Concomitant]
     Active Substance: ASCORBIC ACID
  34. BENZONATATE [Concomitant]
     Active Substance: BENZONATATE
  35. PROMETHAZINE [Concomitant]
     Active Substance: PROMETHAZINE HYDROCHLORIDE
  36. HYDROCHLOROTHIAZIDE [Concomitant]
     Active Substance: HYDROCHLOROTHIAZIDE
  37. KETOCONAZOLE [Concomitant]
     Active Substance: KETOCONAZOLE
  38. MONTELUKAST [Concomitant]
     Active Substance: MONTELUKAST SODIUM
  39. SEVELAMER CARBONATE [Concomitant]
     Active Substance: SEVELAMER CARBONATE

REACTIONS (7)
  - Chronic kidney disease [Not Recovered/Not Resolved]
  - End stage renal disease [Not Recovered/Not Resolved]
  - Renal failure [Unknown]
  - Renal hypertension [Unknown]
  - Nephrogenic anaemia [Unknown]
  - Acute kidney injury [Unknown]
  - Metabolic acidosis [Unknown]

NARRATIVE: CASE EVENT DATE: 20130717
